FAERS Safety Report 7233106-2 (Version None)
Quarter: 2011Q1

REPORT INFORMATION
  Report Type: 
  Country: None (occurrence: None)
  Receive Date: 20110106
  Receipt Date: 20101121
  Transmission Date: 20110831
  Serious: Yes (Death, Other)
  Sender: FDA-Public Use
  Company Number: 2010005049

PATIENT
  Sex: Male

DRUGS (3)
  1. TARCEVA [Suspect]
     Indication: PRODUCT USED FOR UNKNOWN INDICATION
     Dosage: MG, ORAL
     Route: 048
  2. CISPLATIN [Concomitant]
  3. GEMZAR [Concomitant]

REACTIONS (3)
  - PANCREATITIS [None]
  - SEPSIS [None]
  - NEOPLASM MALIGNANT [None]
